FAERS Safety Report 10161272 (Version 2)
Quarter: 2014Q2

REPORT INFORMATION
  Report Type: Spontaneous
  Country: FR (occurrence: FR)
  Receive Date: 20140508
  Receipt Date: 20140617
  Transmission Date: 20141212
  Serious: Yes (Other)
  Sender: FDA-Public Use
  Company Number: FR-PFIZER INC-2014123581

PATIENT
  Age: 53 Year
  Sex: Female
  Weight: 56 kg

DRUGS (5)
  1. DOSTINEX [Suspect]
     Indication: HYPERPROLACTINAEMIA
     Dosage: 0.5 MG, WEEKLY
     Dates: end: 20140403
  2. DOSTINEX [Suspect]
     Dosage: 0.5 MG, WEEKLY
     Dates: start: 201404, end: 20140409
  3. UVEDOSE [Concomitant]
     Indication: VITAMIN D DEFICIENCY
     Dosage: UNK
     Route: 048
     Dates: start: 201402
  4. ESTREVA [Concomitant]
     Indication: MENOPAUSE
     Dosage: 2 DF, DAILY
     Route: 003
     Dates: start: 201403
  5. DUPHASTON [Concomitant]
     Indication: MENOPAUSE
     Dosage: 2 DF, DAILY
     Route: 048
     Dates: start: 201403

REACTIONS (5)
  - Altered state of consciousness [Recovered/Resolved]
  - Road traffic accident [Unknown]
  - Blood prolactin increased [Unknown]
  - Asthenia [Recovered/Resolved]
  - Somnolence [Recovered/Resolved]
